FAERS Safety Report 5664511-3 (Version None)
Quarter: 2008Q1

REPORT INFORMATION
  Report Type: 
  Country: None (occurrence: None)
  Receive Date: 20080314
  Receipt Date: 20080313
  Transmission Date: 20080703
  Serious: Yes (Other)
  Sender: FDA-Public Use
  Company Number: B0512142A

PATIENT
  Age: 80 Year
  Sex: Male

DRUGS (3)
  1. ZEFIX [Suspect]
     Indication: HEPATITIS B
     Dosage: 100MG PER DAY
     Route: 048
     Dates: start: 20071201
  2. LACTULOSE [Concomitant]
     Dosage: 10ML THREE TIMES PER DAY
     Route: 048
  3. ALDACTONE [Concomitant]
     Dosage: 25MG PER DAY
     Route: 048

REACTIONS (2)
  - CONVULSION [None]
  - LOSS OF CONSCIOUSNESS [None]
